FAERS Safety Report 5519741-8 (Version None)
Quarter: 2007Q4

REPORT INFORMATION
  Report Type: 
  Country: None (occurrence: None)
  Receive Date: 20071116
  Receipt Date: 20070726
  Transmission Date: 20080405
  Serious: No
  Sender: FDA-Public Use
  Company Number: A0667399A

PATIENT
  Sex: Male

DRUGS (1)
  1. COREG CR [Suspect]
     Indication: DRUG USE FOR UNKNOWN INDICATION
     Dosage: 40MG UNKNOWN
     Route: 048

REACTIONS (6)
  - FEELING ABNORMAL [None]
  - ILL-DEFINED DISORDER [None]
  - INSOMNIA [None]
  - MENTAL DISORDER [None]
  - MENTAL IMPAIRMENT [None]
  - PERFORMANCE STATUS DECREASED [None]
